FAERS Safety Report 8261977-X (Version None)
Quarter: 2012Q2

REPORT INFORMATION
  Report Type: 
  Country: None (occurrence: None)
  Receive Date: 20120405
  Receipt Date: 20120329
  Transmission Date: 20120825
  Serious: Yes (Hospitalization)
  Sender: FDA-Public Use
  Company Number: FR-SANOFI-AVENTIS-2012SA021730

PATIENT
  Age: 87 Year
  Sex: Male

DRUGS (2)
  1. LOVENOX [Suspect]
     Indication: ATRIAL FIBRILLATION
     Route: 058
     Dates: start: 20120113, end: 20120124
  2. PREVISCAN [Suspect]
     Indication: ATRIAL FIBRILLATION
     Route: 048
     Dates: start: 20120119, end: 20120123

REACTIONS (3)
  - FEMORAL NERVE PALSY [None]
  - ANAEMIA [None]
  - MUSCLE HAEMORRHAGE [None]
